FAERS Safety Report 6135858-1 (Version None)
Quarter: 2009Q1

REPORT INFORMATION
  Report Type: 
  Country: None (occurrence: None)
  Receive Date: 20090327
  Receipt Date: 20090313
  Transmission Date: 20090719
  Serious: Yes (Other)
  Sender: FDA-Public Use
  Company Number: DE-GENENTECH-279817

PATIENT
  Sex: Female

DRUGS (12)
  1. LUCENTIS [Suspect]
     Indication: MACULAR DEGENERATION
     Dosage: UNK
     Dates: start: 20081014
  2. LUCENTIS [Suspect]
     Indication: CHOROIDAL NEOVASCULARISATION
  3. MAXIDEX [Suspect]
     Indication: DRUG USE FOR UNKNOWN INDICATION
     Dosage: UNK
     Dates: start: 20081002
  4. NEO-SYNEPHRINOL [Suspect]
     Indication: DRUG USE FOR UNKNOWN INDICATION
  5. TROPICAMIDE [Concomitant]
     Indication: DRUG USE FOR UNKNOWN INDICATION
  6. BRAUNOL [Concomitant]
     Indication: DRUG USE FOR UNKNOWN INDICATION
     Dosage: UNK
     Dates: start: 20081002
  7. PROXYMETACAINE HCL [Concomitant]
     Indication: DRUG USE FOR UNKNOWN INDICATION
  8. NAPHAZOLINE HYDROCHLORIDE [Concomitant]
     Indication: DRUG USE FOR UNKNOWN INDICATION
  9. TETRACAINE HYDROCHLORIDE [Concomitant]
     Indication: DRUG USE FOR UNKNOWN INDICATION
  10. FLOXAL [Concomitant]
     Indication: DRUG USE FOR UNKNOWN INDICATION
  11. RENACOR [Concomitant]
     Indication: DRUG USE FOR UNKNOWN INDICATION
  12. ATENOLOL [Concomitant]
     Indication: DRUG USE FOR UNKNOWN INDICATION

REACTIONS (1)
  - ERYTHEMA MULTIFORME [None]
